FAERS Safety Report 11839805 (Version 1)
Quarter: 2015Q4

REPORT INFORMATION
  Report Type: Spontaneous
  Country: US (occurrence: None)
  Receive Date: 20151215
  Receipt Date: 20151215
  Transmission Date: 20160305
  Serious: No
  Sender: FDA-Public Use
  Company Number: None

PATIENT
  Age: 65 Year
  Sex: Female
  Weight: 49.44 kg

DRUGS (3)
  1. TRIAMCINOLONE ACETONIDE CREAM 0.1% PERRIGO [Suspect]
     Active Substance: TRIAMCINOLONE ACETONIDE
     Indication: ECZEMA
     Dosage: APPLIED TO A SURFACE, USUALLY THE SKIN; APPLY TO AFFECTED AREA
     Route: 061
     Dates: start: 20151108, end: 20151203
  2. WHOLE FOOD VITAMIN [Concomitant]
  3. FLAXSEED [Concomitant]
     Active Substance: FLAX SEED

REACTIONS (2)
  - Urinary tract inflammation [None]
  - Insomnia [None]
